FAERS Safety Report 20637862 (Version 1)
Quarter: 2022Q1

REPORT INFORMATION
  Report Type: Spontaneous
  Country: DE (occurrence: None)
  Receive Date: 20220325
  Receipt Date: 20220325
  Transmission Date: 20220423
  Serious: Yes (Other)
  Sender: FDA-Public Use
  Company Number: 2022A122445

PATIENT
  Age: 63 Year
  Sex: Female

DRUGS (7)
  1. FASLODEX [Suspect]
     Active Substance: FULVESTRANT
     Route: 030
  2. PALBOCICLIB [Suspect]
     Active Substance: PALBOCICLIB
     Route: 048
  3. TAXOL [Concomitant]
     Active Substance: PACLITAXEL
     Dates: start: 201909, end: 202002
  4. XGEVA [Concomitant]
     Active Substance: DENOSUMAB
     Dates: start: 201909, end: 202002
  5. OLAPARIB [Concomitant]
     Active Substance: OLAPARIB
     Indication: BRCA1 gene mutation
  6. OLAPARIB [Concomitant]
     Active Substance: OLAPARIB
     Indication: BRCA2 gene mutation
  7. VINORELBINE [Concomitant]
     Active Substance: VINORELBINE TARTRATE
     Route: 042

REACTIONS (1)
  - Metastases to central nervous system [Unknown]
